FAERS Safety Report 20977347 (Version 2)
Quarter: 2022Q2

REPORT INFORMATION
  Report Type: Spontaneous
  Country: US (occurrence: US)
  Receive Date: 20220617
  Receipt Date: 20220624
  Transmission Date: 20220721
  Serious: No
  Sender: FDA-Public Use
  Company Number: US-009507513-2206USA003496

PATIENT
  Age: 7 Year
  Sex: Female

DRUGS (1)
  1. PREVYMIS [Suspect]
     Active Substance: LETERMOVIR
     Indication: Cytomegalovirus infection
     Dosage: UNK
     Route: 048

REACTIONS (2)
  - Product prescribing issue [Unknown]
  - No adverse event [Unknown]
